FAERS Safety Report 20554865 (Version 2)
Quarter: 2022Q1

REPORT INFORMATION
  Report Type: Spontaneous
  Country: US (occurrence: US)
  Receive Date: 20220304
  Receipt Date: 20220308
  Transmission Date: 20220423
  Serious: Yes (Hospitalization)
  Sender: FDA-Public Use
  Company Number: US-CELGENE-USA-20220300357

PATIENT
  Sex: Female

DRUGS (1)
  1. POMALYST [Suspect]
     Active Substance: POMALIDOMIDE
     Indication: Plasma cell myeloma
     Dosage: 4 MG
     Route: 048
     Dates: start: 202108

REACTIONS (7)
  - Asthma [Unknown]
  - Cough [Unknown]
  - Product dose omission in error [Unknown]
  - Alopecia [Unknown]
  - Appetite disorder [Unknown]
  - Musculoskeletal pain [Unknown]
  - Nausea [Unknown]
